FAERS Safety Report 5211417-X (Version None)
Quarter: 2006Q4

REPORT INFORMATION
  Report Type: 
  Country: None (occurrence: None)
  Receive Date: 20061115
  Receipt Date: 20060710
  Transmission Date: 20070319
  Serious: No
  Sender: FDA-Public Use
  Company Number: 200614575BWH

PATIENT
  Age: 65 Year
  Sex: Male

DRUGS (9)
  1. NEXAVAR [Suspect]
     Indication: RENAL CELL CARCINOMA STAGE UNSPECIFIED
     Dosage: 400 MG, BID, ORAL; 400 MG, TOTAL DAILY, ORAL
     Route: 048
     Dates: start: 20060601
  2. TRICOR [Concomitant]
  3. ZETIA [Concomitant]
  4. CRESTOR [Concomitant]
  5. VITAMIN E [Concomitant]
  6. ASCORBIC ACID [Concomitant]
  7. MULTI-VITAMIN [Concomitant]
  8. FISH OIL [Concomitant]
  9. PRILOSEC [Concomitant]

REACTIONS (2)
  - ABDOMINAL PAIN UPPER [None]
  - PANCREATIC DISORDER [None]
